FAERS Safety Report 6371323-4 (Version None)
Quarter: 2009Q3

REPORT INFORMATION
  Report Type: 
  Country: None (occurrence: None)
  Receive Date: 20090923
  Receipt Date: 20090911
  Transmission Date: 20100115
  Serious: Yes (Hospitalization, Disabling)
  Sender: FDA-Public Use
  Company Number: GB-ELI_LILLY_AND_COMPANY-GB200909002470

PATIENT
  Age: 87 Year
  Sex: Female

DRUGS (14)
  1. FORTEO [Suspect]
     Indication: OSTEOPOROSIS
     Dosage: 20 UG, UNK
     Route: 058
  2. AMLODIPINE [Concomitant]
     Dosage: 10 MG, DAILY (1/D)
  3. BISOPROLOL FUMARATE [Concomitant]
     Dosage: 1.25 MG, DAILY (1/D)
  4. CALCICHEW D3 [Concomitant]
     Dosage: 1 D/F, 2/D
     Route: 048
  5. CARVEDILOL [Concomitant]
     Dosage: 6.25 MG, DAILY (1/D)
  6. CHLORPHENIRAMINE MALEATE [Concomitant]
     Dosage: 4 MG, UNK
  7. CO-AMILOFRUSE [Concomitant]
     Dosage: 1 D/F, DAILY (1/D)
  8. DIGOXIN [Concomitant]
     Dosage: 6.25 UG, DAILY (1/D)
  9. DOCUSATE [Concomitant]
     Dosage: 200 MG, 2/D
  10. DOXAZOSIN MESYLATE [Concomitant]
     Dosage: 4 MG, DAILY (1/D)
  11. LANSOPRAZOLE [Concomitant]
     Dosage: 30 MG, DAILY (1/D)
  12. RAMIPRIL [Concomitant]
     Dosage: 5 MG, DAILY (1/D)
  13. SIMVASTATIN [Concomitant]
     Dosage: 40 MG, UNK
  14. WARFARIN SODIUM [Concomitant]

REACTIONS (4)
  - CEREBRAL HAEMORRHAGE [None]
  - CEREBRAL INFARCTION [None]
  - INTERNATIONAL NORMALISED RATIO ABNORMAL [None]
  - PROTHROMBIN TIME ABNORMAL [None]
